FAERS Safety Report 13351980 (Version 1)
Quarter: 2017Q1

REPORT INFORMATION
  Report Type: Spontaneous
  Country: US (occurrence: US)
  Receive Date: 20170320
  Receipt Date: 20170320
  Transmission Date: 20170429
  Serious: No
  Sender: FDA-Public Use
  Company Number: US-SA-2016SA049088

PATIENT
  Age: 79 Year
  Sex: Male
  Weight: 99.79 kg

DRUGS (1)
  1. NASACORT ALLERGY 24HR [Suspect]
     Active Substance: TRIAMCINOLONE ACETONIDE
     Indication: SINUS CONGESTION
     Dosage: 55 MCG PER SPRAY?DOSE AND DAILY DOSE: 1 SPRAY EACH NOSTRIL 1 PER DAY
     Route: 045
     Dates: start: 20150815, end: 20160302

REACTIONS (2)
  - Flushing [Recovered/Resolved]
  - Paraesthesia [Recovered/Resolved]

NARRATIVE: CASE EVENT DATE: 20160301
